FAERS Safety Report 9812093 (Version 1)
Quarter: 2014Q1

REPORT INFORMATION
  Report Type: Spontaneous
  Country: CA (occurrence: CA)
  Receive Date: 20140111
  Receipt Date: 20140111
  Transmission Date: 20141002
  Serious: Yes (Life-Threatening, Hospitalization, Other)
  Sender: FDA-Public Use
  Company Number: CA-ASTRAZENECA-2014SE01191

PATIENT
  Age: 56 Year
  Sex: Male
  Weight: 95 kg

DRUGS (2)
  1. CRESTOR [Suspect]
     Route: 048
  2. LIPIDIL [Concomitant]

REACTIONS (7)
  - Enzyme level increased [Recovered/Resolved]
  - Hepatic failure [Recovered/Resolved]
  - Infection [Recovered/Resolved]
  - Night sweats [Recovered/Resolved]
  - Pyrexia [Recovered/Resolved]
  - White blood cell count increased [Recovered/Resolved]
  - Arthralgia [Recovered/Resolved]
